FAERS Safety Report 4445288-6 (Version None)
Quarter: 2004Q3

REPORT INFORMATION
  Report Type: 
  Country: None (occurrence: None)
  Receive Date: 20040730
  Receipt Date: 20040621
  Transmission Date: 20050211
  Serious: No
  Sender: FDA-Public Use
  Company Number: PHEH2004US06846

PATIENT
  Age: 60 Year
  Sex: Male

DRUGS (1)
  1. GLEEVEC [Suspect]
     Indication: CHRONIC MYELOID LEUKAEMIA
     Dosage: 400 MG,QD,ORAL; 200 MG,QD,ORAL
     Route: 048
     Dates: start: 20030101

REACTIONS (10)
  - ASTHENIA [None]
  - DIARRHOEA [None]
  - DYSPEPSIA [None]
  - EYE DISCHARGE [None]
  - EYE REDNESS [None]
  - EYE SWELLING [None]
  - FLUID RETENTION [None]
  - HEARING IMPAIRED [None]
  - OESOPHAGEAL DISCOMFORT [None]
  - TREMOR [None]
